FAERS Safety Report 6882767-6 (Version None)
Quarter: 2010Q3

REPORT INFORMATION
  Report Type: 
  Country: None (occurrence: None)
  Receive Date: 20100729
  Receipt Date: 20100720
  Transmission Date: 20110219
  Serious: Yes (Life-Threatening, Other)
  Sender: FDA-Public Use
  Company Number: US-PFIZER INC-2010091201

PATIENT
  Age: 14 Year
  Sex: Female

DRUGS (4)
  1. SILDENAFIL CITRATE [Suspect]
     Indication: PULMONARY HYPERTENSION
     Dosage: UNK
  2. ILOPROST [Suspect]
     Indication: PULMONARY HYPERTENSION
     Dosage: UNK
  3. NITRIC OXIDE [Suspect]
     Indication: PULMONARY HYPERTENSION
     Dosage: UNK
  4. OXYGEN [Concomitant]
     Dosage: UNK

REACTIONS (2)
  - BACTERAEMIA [None]
  - PULMONARY VENO-OCCLUSIVE DISEASE [None]
